FAERS Safety Report 7542241-0 (Version None)
Quarter: 2011Q2

REPORT INFORMATION
  Report Type: 
  Country: None (occurrence: None)
  Receive Date: 20110613
  Receipt Date: 20110607
  Transmission Date: 20111010
  Serious: Yes (Death, Hospitalization)
  Sender: FDA-Public Use
  Company Number: FR-PFIZER INC-2011123084

PATIENT
  Age: 71 Year
  Sex: Male

DRUGS (13)
  1. FLAGYL [Concomitant]
     Indication: PSEUDOMEMBRANOUS COLITIS
     Dosage: 1 G, 1X/DAY
     Route: 042
     Dates: start: 20110422, end: 20110428
  2. CEFPODOXIME PROXETIL [Concomitant]
     Indication: LUNG DISORDER
     Dosage: UNK
     Dates: start: 20110321
  3. ROCEPHIN [Concomitant]
  4. LOVENOX [Concomitant]
     Dosage: 1 DF, 1X/DAY
     Route: 058
     Dates: end: 20110422
  5. NOREPINEPHRINE BITARTRATE [Concomitant]
     Dosage: 78 NG, 1X/DAY
     Route: 042
     Dates: start: 20110324, end: 20110504
  6. ZYVOX [Suspect]
     Indication: ENTEROCOCCAL INFECTION
     Dosage: 1200 MG PER DAY
     Route: 042
     Dates: start: 20110420, end: 20110423
  7. LEVOFLOXACIN [Concomitant]
  8. ZYVOX [Suspect]
     Indication: PSEUDOMONAS INFECTION
  9. CORDARONE [Concomitant]
     Indication: ARRHYTHMIA
     Dosage: 200 MG, 1X/DAY
     Route: 048
     Dates: start: 20110324, end: 20110504
  10. TIENAM [Concomitant]
     Indication: STREPTOCOCCAL INFECTION
     Dosage: UNK
     Dates: start: 20110423
  11. TIENAM [Concomitant]
     Indication: PSEUDOMONAS INFECTION
  12. FENTANYL [Concomitant]
     Indication: PAIN
     Dosage: 350 UG, 1X/DAY
     Route: 042
     Dates: start: 20110324, end: 20110504
  13. ZYVOX [Suspect]
     Indication: STREPTOCOCCAL INFECTION
     Dosage: UNK
     Route: 042
     Dates: start: 20110429

REACTIONS (3)
  - LEUKOPENIA [None]
  - ANAEMIA [None]
  - THROMBOCYTOPENIA [None]
